FAERS Safety Report 11656463 (Version 6)
Quarter: 2017Q1

REPORT INFORMATION
  Report Type: Report from Study
  Country: DE (occurrence: DE)
  Receive Date: 20151023
  Receipt Date: 20170104
  Transmission Date: 20170428
  Serious: Yes (Death, Hospitalization)
  Sender: FDA-Public Use
  Company Number: DE-JNJFOC-20151010172

PATIENT
  Age: 65 Year
  Sex: Male
  Weight: 117 kg

DRUGS (14)
  1. CISPLATIN W/ETOPOSIDE [Suspect]
     Active Substance: CISPLATIN\ETOPOSIDE
     Indication: NEUROENDOCRINE CARCINOMA METASTATIC
     Dosage: START DATE: 07-OCT-2015
     Route: 065
     Dates: start: 2015
  2. CISPLATIN W/ETOPOSIDE [Suspect]
     Active Substance: CISPLATIN\ETOPOSIDE
     Indication: NEUROENDOCRINE CARCINOMA METASTATIC
     Route: 065
     Dates: start: 20160126
  3. PANTOZOL [Concomitant]
     Active Substance: PANTOPRAZOLE SODIUM
     Dosage: EVERY MORNING
     Route: 065
  4. DEXAMETHASONE. [Suspect]
     Active Substance: DEXAMETHASONE
     Indication: PRODUCT USED FOR UNKNOWN INDICATION
     Dosage: STRENGTH: 4 MG- HALF A DOSE EVERY MORNING
     Route: 065
  5. DEXAMETHASONE. [Suspect]
     Active Substance: DEXAMETHASONE
     Indication: PRODUCT USED FOR UNKNOWN INDICATION
     Route: 065
  6. CISPLATIN W/ETOPOSIDE [Suspect]
     Active Substance: CISPLATIN\ETOPOSIDE
     Indication: NEUROENDOCRINE CARCINOMA METASTATIC
     Route: 065
     Dates: start: 20151028
  7. METHOTREXATE. [Suspect]
     Active Substance: METHOTREXATE
     Indication: PSORIASIS
     Route: 048
     Dates: start: 20120123, end: 20121106
  8. ACETYLSALICYLIC ACID [Concomitant]
     Active Substance: ASPIRIN
     Dosage: EVERY AFTERNOON
     Route: 065
  9. STELARA [Suspect]
     Active Substance: USTEKINUMAB
     Indication: PSORIASIS
     Route: 058
     Dates: start: 20141124, end: 20150709
  10. HUMIRA [Suspect]
     Active Substance: ADALIMUMAB
     Indication: PSORIASIS
     Route: 058
     Dates: start: 20121220, end: 201408
  11. NOVALGIN [Concomitant]
     Active Substance: METAMIZOLE SODIUM
     Route: 065
  12. METHOTREXATE. [Suspect]
     Active Substance: METHOTREXATE
     Indication: PSORIASIS
     Route: 048
     Dates: start: 20130627, end: 20141023
  13. CISPLATIN W/ETOPOSIDE [Suspect]
     Active Substance: CISPLATIN\ETOPOSIDE
     Indication: NEUROENDOCRINE CARCINOMA METASTATIC
     Route: 065
     Dates: start: 20151215
  14. HEPARIN [Suspect]
     Active Substance: HEPARIN SODIUM
     Indication: PRODUCT USED FOR UNKNOWN INDICATION
     Route: 065

REACTIONS (10)
  - Pancytopenia [Unknown]
  - Hypokalaemia [Recovering/Resolving]
  - Dehydration [Unknown]
  - Bacteriuria [Unknown]
  - Febrile neutropenia [Recovered/Resolved]
  - Eyelid ptosis [Unknown]
  - Glucose tolerance impaired [Unknown]
  - Pathological fracture [Unknown]
  - Metastases to central nervous system [Unknown]
  - Neuroendocrine carcinoma metastatic [Fatal]

NARRATIVE: CASE EVENT DATE: 2015
